FAERS Safety Report 15900902 (Version 1)
Quarter: 2019Q1

REPORT INFORMATION
  Report Type: Report from Study
  Country: None (occurrence: BR)
  Receive Date: 20190201
  Receipt Date: 20190201
  Transmission Date: 20190417
  Serious: Yes (Death, Hospitalization)
  Sender: FDA-Public Use
  Company Number: BR-ABBVIE-19K-020-2647878-00

PATIENT
  Age: 82 Year
  Sex: Female
  Weight: 65 kg

DRUGS (1)
  1. HUMIRA [Suspect]
     Active Substance: ADALIMUMAB
     Indication: RHEUMATOID ARTHRITIS
     Route: 058
     Dates: end: 20181018

REACTIONS (6)
  - Myocardial infarction [Not Recovered/Not Resolved]
  - Cystitis [Fatal]
  - Urinary retention [Not Recovered/Not Resolved]
  - Renal failure [Fatal]
  - Pain [Not Recovered/Not Resolved]
  - Cardiac disorder [Fatal]

NARRATIVE: CASE EVENT DATE: 20180918
